FAERS Safety Report 7377665-8 (Version None)
Quarter: 2011Q1

REPORT INFORMATION
  Report Type: 
  Country: None (occurrence: None)
  Receive Date: 20110328
  Receipt Date: 20110316
  Transmission Date: 20110831
  Serious: Yes (Hospitalization)
  Sender: FDA-Public Use
  Company Number: PHHY2011JP21469

PATIENT
  Age: 8 Year
  Sex: Female

DRUGS (4)
  1. TEGRETOL [Suspect]
     Indication: FRONTAL LOBE EPILEPSY
  2. VALPROATE SODIUM [Concomitant]
     Indication: FRONTAL LOBE EPILEPSY
  3. ZONISAMIDE [Concomitant]
     Indication: FRONTAL LOBE EPILEPSY
  4. CLONAZEPAM [Concomitant]

REACTIONS (2)
  - SOMNOLENCE [None]
  - CONVERSION DISORDER [None]
